FAERS Safety Report 5752855-6 (Version None)
Quarter: 2008Q2

REPORT INFORMATION
  Report Type: 
  Country: None (occurrence: None)
  Receive Date: 20080529
  Receipt Date: 20080520
  Transmission Date: 20081010
  Serious: Yes (Other)
  Sender: FDA-Public Use
  Company Number: BE-PFIZER INC-2008043623

PATIENT
  Sex: Female

DRUGS (2)
  1. SUTENT [Suspect]
     Route: 048
  2. TAMOXIFEN CITRATE [Concomitant]

REACTIONS (2)
  - PETECHIAE [None]
  - THROMBOCYTOPENIA [None]
